FAERS Safety Report 9336842 (Version 1)
Quarter: 2013Q2

REPORT INFORMATION
  Report Type: Spontaneous
  Country: IT (occurrence: IT)
  Receive Date: 20130607
  Receipt Date: 20130607
  Transmission Date: 20140414
  Serious: Yes (Hospitalization)
  Sender: FDA-Public Use
  Company Number: IT-PFIZER INC-2013169191

PATIENT
  Sex: Male
  Weight: 70 kg

DRUGS (1)
  1. LATANOPROST [Suspect]
     Indication: GLAUCOMA
     Dosage: 1 GTT, 1X/DAY
     Route: 031

REACTIONS (3)
  - Syncope [Recovered/Resolved]
  - Eyelash thickening [Unknown]
  - Eyelash hyperpigmentation [Unknown]
